FAERS Safety Report 5331698-1 (Version None)
Quarter: 2007Q2

REPORT INFORMATION
  Report Type: 
  Country: None (occurrence: None)
  Receive Date: 20070522
  Receipt Date: 20070517
  Transmission Date: 20071010
  Serious: Yes (Death, Life-Threatening, Other)
  Sender: FDA-Public Use
  Company Number: JP-GENENTECH-223509

PATIENT
  Age: 71 Year
  Sex: Male

DRUGS (10)
  1. GRTPA [Suspect]
     Indication: CEREBRAL ARTERY EMBOLISM
     Dosage: 41.4 MG, UNK
     Route: 042
     Dates: start: 20060110, end: 20060110
  2. ADALAT CC [Concomitant]
     Indication: DRUG USE FOR UNKNOWN INDICATION
     Dates: start: 20060110, end: 20060111
  3. HERBESSER [Concomitant]
     Indication: DRUG USE FOR UNKNOWN INDICATION
     Dates: start: 20060110, end: 20060112
  4. LACTEC [Concomitant]
     Indication: DRUG USE FOR UNKNOWN INDICATION
  5. GLYCERIN [Concomitant]
     Indication: DRUG USE FOR UNKNOWN INDICATION
  6. FRUCTOSE [Concomitant]
     Indication: DRUG USE FOR UNKNOWN INDICATION
  7. HUMULIN 70/30 [Concomitant]
     Indication: DRUG USE FOR UNKNOWN INDICATION
  8. LASIX [Concomitant]
     Indication: DRUG USE FOR UNKNOWN INDICATION
     Dates: start: 20060112, end: 20060113
  9. VITAMIN D [Concomitant]
     Indication: DRUG USE FOR UNKNOWN INDICATION
     Dates: start: 20060112, end: 20060114
  10. DOPAMINE HCL [Concomitant]
     Indication: DRUG USE FOR UNKNOWN INDICATION
     Dates: start: 20060113, end: 20060114

REACTIONS (1)
  - RENAL FAILURE ACUTE [None]
